FAERS Safety Report 23905218 (Version 2)
Quarter: 2024Q3

REPORT INFORMATION
  Report Type: Spontaneous
  Country: US (occurrence: US)
  Receive Date: 20240527
  Receipt Date: 20240703
  Transmission Date: 20241017
  Serious: No
  Sender: SANOFI AVENTIS
  Company Number: US-SANOFI-02058137

PATIENT
  Age: 74 Year
  Sex: Female
  Weight: 23 kg

DRUGS (3)
  1. LANTUS SOLOSTAR [Suspect]
     Active Substance: INSULIN GLARGINE
     Dosage: 34 UNITS AT NIGHT AND 14 UNITS IN THE MORNING
  2. LANTUS [Suspect]
     Active Substance: INSULIN GLARGINE
     Dosage: 14 UNITS MORNING AND 34 UNITS NIGHT, BID
     Dates: start: 20240521, end: 20240521
  3. HUMALOG [Concomitant]
     Active Substance: INSULIN LISPRO

REACTIONS (1)
  - Inappropriate schedule of product administration [Unknown]

NARRATIVE: CASE EVENT DATE: 20240521
